FAERS Safety Report 9927527 (Version 2)
Quarter: 2015Q4

REPORT INFORMATION
  Report Type: Report from Study
  Country: US (occurrence: US)
  Receive Date: 20140227
  Receipt Date: 20151102
  Transmission Date: 20160305
  Serious: Yes (Other)
  Sender: FDA-Public Use
  Company Number: US-ROCHE-1339312

PATIENT
  Sex: Male

DRUGS (17)
  1. LUCENTIS [Suspect]
     Active Substance: RANIBIZUMAB
     Indication: DIABETIC EYE DISEASE
     Dosage: OU
     Route: 050
  2. VICTOZA [Concomitant]
     Active Substance: LIRAGLUTIDE
  3. PROTONIX (UNITED STATES) [Concomitant]
  4. BETADINE [Concomitant]
     Active Substance: POVIDONE-IODINE
     Route: 065
  5. LUCENTIS [Suspect]
     Active Substance: RANIBIZUMAB
     Indication: DIABETIC RETINAL OEDEMA
     Dosage: OU
     Route: 050
  6. COENZYME Q-10 [Concomitant]
  7. RAMIPRIL. [Concomitant]
     Active Substance: RAMIPRIL
  8. PRAVASTATIN [Concomitant]
     Active Substance: PRAVASTATIN\PRAVASTATIN SODIUM
  9. TOBREX [Concomitant]
     Active Substance: TOBRAMYCIN
     Dosage: POST INJECTION EYE DROPS
     Route: 065
  10. METFORMIN [Concomitant]
     Active Substance: METFORMIN HYDROCHLORIDE
  11. ALTACE [Concomitant]
     Active Substance: RAMIPRIL
  12. LASIX [Concomitant]
     Active Substance: FUROSEMIDE
  13. LUCENTIS [Suspect]
     Active Substance: RANIBIZUMAB
     Indication: DIABETIC RETINOPATHY
  14. TETRACAINE. [Concomitant]
     Active Substance: TETRACAINE
  15. CRESTOR [Concomitant]
     Active Substance: ROSUVASTATIN CALCIUM
  16. AVASTIN [Suspect]
     Active Substance: BEVACIZUMAB
     Indication: PRODUCT USED FOR UNKNOWN INDICATION
     Route: 065
     Dates: end: 20090211
  17. FISH OIL [Concomitant]
     Active Substance: FISH OIL

REACTIONS (11)
  - Macular fibrosis [Unknown]
  - Coronary artery bypass [Unknown]
  - Dry eye [Unknown]
  - Visual acuity reduced [Unknown]
  - Blood glucose fluctuation [Unknown]
  - Myocardial infarction [Unknown]
  - Intraocular lens implant [Unknown]
  - Off label use [Unknown]
  - Cataract [Unknown]
  - Visual impairment [Unknown]
  - Weight decreased [Unknown]
